FAERS Safety Report 7670259-6 (Version None)
Quarter: 2011Q3

REPORT INFORMATION
  Report Type: 
  Country: None (occurrence: None)
  Receive Date: 20110809
  Receipt Date: 20110801
  Transmission Date: 20111222
  Serious: Yes (Other)
  Sender: FDA-Public Use
  Company Number: US-BRISTOL-MYERS SQUIBB COMPANY-15938673

PATIENT
  Age: 76 Year
  Sex: Male

DRUGS (1)
  1. PACLITAXEL [Suspect]
     Indication: METASTATIC MALIGNANT MELANOMA

REACTIONS (1)
  - MACULOPATHY [None]
